FAERS Safety Report 17562644 (Version 2)
Quarter: 2020Q3

REPORT INFORMATION
  Report Type: Report from Study
  Country: US (occurrence: US)
  Receive Date: 20200319
  Receipt Date: 20200703
  Transmission Date: 20201102
  Serious: Yes (Death, Life-Threatening, Other)
  Sender: FDA-Public Use
  Company Number: NVSC2020US078302

PATIENT
  Age: 71 Year
  Sex: Male

DRUGS (3)
  1. KYMRIAH [Suspect]
     Active Substance: TISAGENLECLEUCEL
     Indication: DIFFUSE LARGE B-CELL LYMPHOMA
     Dosage: UNK
     Route: 065
  2. CYCLOPHOSPHAMIDE. [Concomitant]
     Active Substance: CYCLOPHOSPHAMIDE
     Indication: CHEMOTHERAPY
     Dosage: UNK
     Route: 065
  3. FLUDARABINE [Concomitant]
     Active Substance: FLUDARABINE PHOSPHATE
     Indication: CHEMOTHERAPY
     Dosage: UNK
     Route: 065

REACTIONS (15)
  - Hypogammaglobulinaemia [Unknown]
  - Neurotoxicity [Recovered/Resolved]
  - Malignant neoplasm progression [Fatal]
  - Diffuse large B-cell lymphoma recurrent [Fatal]
  - Haemoglobin decreased [Unknown]
  - Pulmonary toxicity [Unknown]
  - Confusional state [Unknown]
  - White blood cell count decreased [Unknown]
  - Lymphocyte count decreased [Unknown]
  - Gastrointestinal toxicity [Unknown]
  - Sluggishness [Unknown]
  - Haematocrit decreased [Unknown]
  - Platelet count decreased [Unknown]
  - Diffuse large B-cell lymphoma [Fatal]
  - Intestinal obstruction [Unknown]
